FAERS Safety Report 7511015-9 (Version None)
Quarter: 2011Q2

REPORT INFORMATION
  Report Type: 
  Country: None (occurrence: None)
  Receive Date: 20110531
  Receipt Date: 20110526
  Transmission Date: 20111010
  Serious: No
  Sender: FDA-Public Use
  Company Number: US-PFIZER INC-2011077814

PATIENT
  Sex: Female
  Weight: 68.027 kg

DRUGS (4)
  1. VYTORIN [Concomitant]
     Indication: BLOOD CHOLESTEROL INCREASED
     Dosage: UNK
  2. ARTHROTEC [Suspect]
  3. SYNTHROID [Concomitant]
     Indication: HYPOTHYROIDISM
     Dosage: UNK
  4. ARTHROTEC [Suspect]
     Indication: ARTHRITIS
     Dosage: 75/200 MG, DAILY
     Route: 048
     Dates: start: 19930101

REACTIONS (4)
  - ARTHRITIS [None]
  - CONTUSION [None]
  - HEART RATE INCREASED [None]
  - SKIN DISCOLOURATION [None]
